FAERS Safety Report 12079729 (Version 1)
Quarter: 2016Q1

REPORT INFORMATION
  Report Type: Spontaneous
  Country: GB (occurrence: GB)
  Receive Date: 20160216
  Receipt Date: 20160216
  Transmission Date: 20160526
  Serious: Yes (Life-Threatening, Other)
  Sender: FDA-Public Use
  Company Number: GB-SA-2016SA026881

PATIENT
  Age: 60 Year
  Sex: Male
  Weight: 83.8 kg

DRUGS (16)
  1. TEICOPLANIN [Suspect]
     Active Substance: TEICOPLANIN
     Indication: OSTEOMYELITIS ACUTE
     Dosage: 6 WEEK COURSE.
     Route: 042
     Dates: start: 20151229, end: 20160121
  2. CETIRIZINE [Concomitant]
     Active Substance: CETIRIZINE HYDROCHLORIDE
  3. RIFAMPICIN [Suspect]
     Active Substance: RIFAMPIN
     Indication: OSTEOMYELITIS ACUTE
     Dosage: 6 WEEK COURSE.
     Route: 048
     Dates: start: 20151220, end: 20160122
  4. LEVETIRACETAM. [Concomitant]
     Active Substance: LEVETIRACETAM
  5. BISOPROLOL [Concomitant]
     Active Substance: BISOPROLOL
  6. CITALOPRAM [Concomitant]
     Active Substance: CITALOPRAM HYDROBROMIDE
  7. PREGABALIN. [Concomitant]
     Active Substance: PREGABALIN
  8. SIMVASTATIN. [Concomitant]
     Active Substance: SIMVASTATIN
  9. AMLODIPINE [Concomitant]
     Active Substance: AMLODIPINE BESYLATE
  10. CODEINE [Concomitant]
     Active Substance: CODEINE
  11. LANSOPRAZOLE. [Concomitant]
     Active Substance: LANSOPRAZOLE
  12. NOVOMIX [Concomitant]
     Active Substance: INSULIN ASPART
  13. ASPIRIN. [Concomitant]
     Active Substance: ASPIRIN
  14. DOCUSATE [Concomitant]
     Active Substance: DOCUSATE
  15. FERROUS SULFATE [Concomitant]
     Active Substance: FERROUS SULFATE\FERROUS SULFATE, DRIED
  16. SENNA [Concomitant]
     Active Substance: SENNA LEAF\SENNOSIDES\SENNOSIDES A AND B

REACTIONS (2)
  - Liver function test abnormal [Recovering/Resolving]
  - Neutropenia [Recovered/Resolved]

NARRATIVE: CASE EVENT DATE: 20160109
